FAERS Safety Report 9943325 (Version 1)
Quarter: 2014Q1

REPORT INFORMATION
  Report Type: Spontaneous
  Country: US (occurrence: US)
  Receive Date: 20140303
  Receipt Date: 20140303
  Transmission Date: 20141002
  Serious: Yes (Other)
  Sender: FDA-Public Use
  Company Number: PHHY2014US024983

PATIENT
  Age: 49 Year
  Sex: Male

DRUGS (5)
  1. TRILEPTAL [Suspect]
  2. DEPAKOTE [Suspect]
  3. SEROQUEL [Suspect]
  4. LISINOPRIL [Concomitant]
  5. DEXLANSOPRAZOLE [Concomitant]
     Indication: GASTROOESOPHAGEAL REFLUX DISEASE

REACTIONS (9)
  - Volvulus of small bowel [Unknown]
  - Intestinal transit time increased [Unknown]
  - Faecal volume increased [Unknown]
  - Gastrointestinal sounds abnormal [Unknown]
  - Abdominal tenderness [Unknown]
  - Intestinal obstruction [Unknown]
  - Nausea [Unknown]
  - Vomiting [Unknown]
  - Abdominal pain [Unknown]
